FAERS Safety Report 22293198 (Version 1)
Quarter: 2023Q2

REPORT INFORMATION
  Report Type: Report from Study
  Country: US (occurrence: US)
  Receive Date: 20230508
  Receipt Date: 20230508
  Transmission Date: 20230722
  Serious: Yes (Other)
  Sender: FDA-Public Use
  Company Number: US-UCBSA-2023002826

PATIENT
  Sex: Female
  Weight: 120 kg

DRUGS (1)
  1. BRIVARACETAM [Suspect]
     Active Substance: BRIVARACETAM
     Indication: Seizure
     Dosage: 50 MILLIGRAM, 2X/DAY (BID)

REACTIONS (5)
  - Thrombosis [Unknown]
  - Memory impairment [Unknown]
  - Panic attack [Unknown]
  - Product administration error [Unknown]
  - Product quality issue [Unknown]
